FAERS Safety Report 5725815-9 (Version None)
Quarter: 2008Q2

REPORT INFORMATION
  Report Type: 
  Country: None (occurrence: None)
  Receive Date: 20080429
  Receipt Date: 20080429
  Transmission Date: 20081010
  Serious: Yes (Other)
  Sender: FDA-Public Use
  Company Number: 2008SP004886

PATIENT
  Age: 54 Year
  Sex: Male

DRUGS (2)
  1. PEG-INTRON [Suspect]
     Indication: HEPATITIS C
     Dosage: 0.5 ML; QW; SC
     Route: 058
     Dates: start: 20071005
  2. RIBASPHERE [Suspect]
     Indication: HEPATITIS C
     Dosage: 600 MG; BID; PO
     Route: 048
     Dates: start: 20071005

REACTIONS (3)
  - ASTHENIA [None]
  - PAPILLOEDEMA [None]
  - VISUAL ACUITY REDUCED [None]
